FAERS Safety Report 21887002 (Version 1)
Quarter: 2023Q1

REPORT INFORMATION
  Report Type: Spontaneous
  Country: AT (occurrence: AT)
  Receive Date: 20230119
  Receipt Date: 20230119
  Transmission Date: 20230417
  Serious: Yes (Other)
  Sender: FDA-Public Use
  Company Number: AT-GILEAD-2023-0613372

PATIENT
  Sex: Female

DRUGS (1)
  1. TRODELVY [Suspect]
     Active Substance: SACITUZUMAB GOVITECAN-HZIY
     Indication: Product used for unknown indication
     Dosage: UNK DOSE, 2 MONTHS
     Route: 065

REACTIONS (2)
  - Hepatotoxicity [Not Recovered/Not Resolved]
  - Disease progression [Not Recovered/Not Resolved]
